FAERS Safety Report 7465602-7 (Version None)
Quarter: 2011Q2

REPORT INFORMATION
  Report Type: 
  Country: None (occurrence: None)
  Receive Date: 20110509
  Receipt Date: 20110503
  Transmission Date: 20111010
  Serious: Yes (Hospitalization)
  Sender: FDA-Public Use
  Company Number: US-B.I. PHARMACEUTICALS,INC./RIDGEFIELD-2011-BP-03830BP

PATIENT
  Sex: Female

DRUGS (29)
  1. ATACAND [Concomitant]
     Dosage: 16 MG
     Route: 048
  2. LESCOL [Concomitant]
     Indication: BLOOD CHOLESTEROL INCREASED
     Dosage: 40 MG
     Route: 048
  3. VITAMIN D [Concomitant]
     Indication: PROPHYLAXIS
     Dosage: 1000 U
     Route: 048
  4. FLOVENT [Concomitant]
     Indication: ASTHMA
     Dosage: 4 PUF
     Route: 055
  5. METFORMIN [Concomitant]
     Indication: DIABETES MELLITUS
     Dosage: 1 G
     Route: 048
  6. HYDROCODONE BITARTRATE AND ACETAMINOPHEN [Concomitant]
     Indication: ARTHRALGIA
     Route: 048
  7. NITROGLYCERIN [Concomitant]
     Indication: CHEST PAIN
     Dosage: 39 MG
     Route: 048
  8. NITROGLYCERIN [Concomitant]
     Route: 060
  9. FLEXERIL [Concomitant]
     Indication: ARTHRALGIA
     Dosage: 30 MG
     Route: 048
  10. FISH OIL [Concomitant]
     Indication: PROPHYLAXIS
     Dosage: 1200 MG
     Route: 048
  11. ALLOPURINOL [Concomitant]
     Indication: GOUT
     Dosage: 100 MG
     Route: 048
  12. MAXZIDE/HCTZ [Concomitant]
     Route: 048
  13. MAGNESIUM [Concomitant]
     Indication: HYPOMAGNESAEMIA
     Dosage: 400 MG
     Route: 048
  14. NEURONTIN [Concomitant]
     Indication: DIABETIC NEUROPATHY
     Dosage: 600 MG
     Route: 048
  15. ZINC [Concomitant]
     Indication: PROPHYLAXIS
     Dosage: 75 MG
     Route: 048
  16. NEUROPATH B [Concomitant]
     Indication: DIABETIC NEUROPATHY
     Route: 048
  17. CELEBREX [Concomitant]
     Indication: ARTHRITIS
     Dosage: 200 MG
     Route: 048
  18. COLACE [Concomitant]
     Indication: CONSTIPATION PROPHYLAXIS
     Route: 048
  19. VENTOLIN [Concomitant]
     Indication: ASTHMA
     Route: 055
  20. ASTEPRO [Concomitant]
     Route: 045
  21. TIAZAC [Concomitant]
     Indication: HYPERTENSION
     Dosage: 480 MG
     Route: 048
  22. BIOTIN [Concomitant]
     Indication: ALOPECIA
     Dosage: 5000 MCG
     Route: 048
  23. CALCIUM [Concomitant]
     Indication: PROPHYLAXIS
     Dosage: 1000 MG
     Route: 048
  24. VENTOLIN [Concomitant]
     Indication: DYSPNOEA
  25. NEXIUM [Concomitant]
     Dosage: 40 MG
     Route: 048
  26. FLUTICASONE PROPIONATE [Concomitant]
     Route: 045
  27. ASPIRIN [Concomitant]
     Indication: PROPHYLAXIS
     Dosage: 81 MG
     Route: 048
     Dates: end: 20110211
  28. PRADAXA [Suspect]
     Indication: ATRIAL FIBRILLATION
     Dosage: 300 MG
     Route: 048
     Dates: start: 20110101, end: 20110212
  29. CINNAMON [Concomitant]
     Indication: PROPHYLAXIS
     Dosage: 2000 MG
     Route: 048

REACTIONS (6)
  - RECTAL HAEMORRHAGE [None]
  - GASTROINTESTINAL HAEMORRHAGE [None]
  - HAEMATOCHEZIA [None]
  - DYSPEPSIA [None]
  - EPISTAXIS [None]
  - ANAL FISSURE [None]
